FAERS Safety Report 21983173 (Version 1)
Quarter: 2023Q1

REPORT INFORMATION
  Report Type: Spontaneous
  Country: JP (occurrence: JP)
  Receive Date: 20230213
  Receipt Date: 20230213
  Transmission Date: 20230418
  Serious: Yes (Other)
  Sender: FDA-Public Use
  Company Number: JP-MSD-2212JPN003657J

PATIENT
  Age: 85 Year
  Sex: Male
  Weight: 58 kg

DRUGS (3)
  1. BELSOMRA [Suspect]
     Active Substance: SUVOREXANT
     Indication: Insomnia
     Dosage: 20 MG X 14 DOSES
     Route: 048
     Dates: start: 20221116, end: 20221212
  2. ESZOPICLONE [Concomitant]
     Active Substance: ESZOPICLONE
     Indication: Insomnia
     Dosage: 1 MG X 3 TABLETS
     Route: 048
     Dates: start: 20221116, end: 20221212
  3. MAGNESIUM OXIDE [Concomitant]
     Active Substance: MAGNESIUM OXIDE
     Dosage: 250 MG X 2 TABLETS
     Route: 048
     Dates: start: 20221116, end: 20221212

REACTIONS (4)
  - Nightmare [Recovered/Resolved]
  - Product use issue [Unknown]
  - Overdose [Unknown]
  - Off label use [Unknown]

NARRATIVE: CASE EVENT DATE: 20221116
